FAERS Safety Report 5033553-3 (Version None)
Quarter: 2006Q2

REPORT INFORMATION
  Report Type: 
  Country: None (occurrence: None)
  Receive Date: 20060623
  Receipt Date: 20060510
  Transmission Date: 20061013
  Serious: Yes (Hospitalization)
  Sender: FDA-Public Use
  Company Number: IT-ROCHE-447169

PATIENT
  Age: 57 Year
  Sex: Male

DRUGS (9)
  1. MYCOPHENOLATE MOFETIL [Suspect]
     Route: 042
     Dates: start: 20060125, end: 20060125
  2. MYCOPHENOLATE MOFETIL [Suspect]
     Route: 042
     Dates: start: 20060126, end: 20060128
  3. MYCOPHENOLATE MOFETIL [Suspect]
     Route: 042
     Dates: start: 20060129
  4. FK506 [Suspect]
     Route: 048
     Dates: start: 20060115, end: 20060321
  5. FK506 [Suspect]
     Route: 048
     Dates: start: 20060324
  6. ALBUMIN [Concomitant]
  7. BACTRIM [Concomitant]
  8. CIPROFLOXACIN HCL [Concomitant]
  9. INSULIN [Concomitant]

REACTIONS (3)
  - BILE DUCT STENOSIS [None]
  - IMMUNOSUPPRESSANT DRUG LEVEL INCREASED [None]
  - RENAL FAILURE [None]
